FAERS Safety Report 8909567 (Version 1)
Quarter: 2012Q4

REPORT INFORMATION
  Report Type: 
  Country: IT (occurrence: IT)
  Receive Date: 20121115
  Receipt Date: 20121115
  Transmission Date: 20130627
  Serious: Yes (Hospitalization)
  Sender: FDA-Public Use
  Company Number: IT-ROCHE-1154933

PATIENT
  Age: 84 Year
  Sex: Female
  Weight: 80 kg

DRUGS (3)
  1. ROCEFIN [Suspect]
     Indication: BRONCHOPNEUMONIA
     Route: 030
     Dates: start: 20121005, end: 20121005
  2. UNSPECIFIED INGREDIENT [Suspect]
     Indication: UPPER RESPIRATORY TRACT INFECTION
     Route: 048
     Dates: start: 20121005, end: 20121005
  3. BENTELAN [Concomitant]
     Route: 065

REACTIONS (1)
  - Purpura [Not Recovered/Not Resolved]
